FAERS Safety Report 15881318 (Version 2)
Quarter: 2019Q1

REPORT INFORMATION
  Report Type: Spontaneous
  Country: BG (occurrence: BG)
  Receive Date: 20190128
  Receipt Date: 20190205
  Transmission Date: 20190417
  Serious: Yes (Other)
  Sender: FDA-Public Use
  Company Number: BG-MYLANLABS-2019M1007349

PATIENT
  Sex: Male

DRUGS (1)
  1. TENOFOVIR DISOPROXIL MYLAN 245 MG [Suspect]
     Active Substance: TENOFOVIR DISOPROXIL
     Indication: CHRONIC HEPATITIS B
     Dosage: 245 MILLIGRAM, QD
     Route: 048
     Dates: start: 201802

REACTIONS (1)
  - Lichen myxoedematosus [Not Recovered/Not Resolved]

NARRATIVE: CASE EVENT DATE: 201811
